FAERS Safety Report 16992018 (Version 2)
Quarter: 2019Q4

REPORT INFORMATION
  Report Type: Report from Study
  Country: IT (occurrence: IT)
  Receive Date: 20191105
  Receipt Date: 20191122
  Transmission Date: 20200122
  Serious: Yes (Other)
  Sender: FDA-Public Use
  Company Number: IT-ROCHE-2451582

PATIENT
  Age: 78 Year
  Sex: Male

DRUGS (4)
  1. MYCOPHENOLATE MOFETIL. [Suspect]
     Active Substance: MYCOPHENOLATE MOFETIL
     Indication: SERPIGINOUS CHOROIDITIS
     Dosage: 2 G, QD
     Route: 062
  2. DEXAMETHASONE. [Suspect]
     Active Substance: DEXAMETHASONE
     Indication: SERPIGINOUS CHOROIDITIS
     Dosage: THREE INJECTIONS
     Route: 031
  3. MYCOPHENOLATE MOFETIL. [Suspect]
     Active Substance: MYCOPHENOLATE MOFETIL
     Indication: IMMUNOSUPPRESSION
  4. PREDNISONE. [Suspect]
     Active Substance: PREDNISONE
     Indication: SERPIGINOUS CHOROIDITIS
     Dosage: 10 MG, QD
     Route: 062

REACTIONS (4)
  - Intraocular pressure increased [Recovered/Resolved]
  - Serpiginous choroiditis [Unknown]
  - Osteoporosis [Unknown]
  - Off label use [Unknown]
